FAERS Safety Report 6591960-1 (Version None)
Quarter: 2010Q1

REPORT INFORMATION
  Report Type: 
  Country: None (occurrence: None)
  Receive Date: 20100221
  Receipt Date: 20090819
  Transmission Date: 20100710
  Serious: No
  Sender: FDA-Public Use
  Company Number: US-ALLERGAN-0911568US

PATIENT
  Age: 46 Year
  Sex: Female

DRUGS (5)
  1. BOTOX COSMETIC [Suspect]
     Indication: SKIN WRINKLING
     Dosage: 22 UNITS, UNK
     Dates: start: 20090604, end: 20090604
  2. PREMPRO [Concomitant]
  3. FLEXERIL [Concomitant]
  4. ANTI OXIDANT [Concomitant]
  5. SEAWEED EXTRACT [Concomitant]

REACTIONS (2)
  - FATIGUE [None]
  - PAIN [None]
